FAERS Safety Report 8838514 (Version 2)
Quarter: 2012Q4

REPORT INFORMATION
  Report Type: 
  Country: GB (occurrence: GB)
  Receive Date: 20121012
  Receipt Date: 20121226
  Transmission Date: 20130627
  Serious: Yes (Hospitalization, Other)
  Sender: FDA-Public Use
  Company Number: GB-TEVA-362839ISR

PATIENT
  Age: 55 Year
  Sex: Female

DRUGS (7)
  1. AMITRIPTYLINE HCL [Suspect]
     Indication: MIGRAINE
  2. CAFFEINE [Suspect]
     Indication: HEADACHE
  3. MEFENAMIC ACID [Suspect]
     Indication: MIGRAINE
  4. REYATAZ [Suspect]
     Indication: HIV INFECTION
     Dosage: 300 Milligram Daily;
     Route: 048
     Dates: start: 201103, end: 201205
  5. ABACAVIR + LAMIVUDINE [Suspect]
     Indication: HIV INFECTION
     Dosage: 1 Dosage forms Daily; 1df:abacavir(600mg)/lamivudine(300mg)
     Dates: start: 201103, end: 201205
  6. RITONAVIR [Suspect]
     Dates: start: 201203, end: 201205
  7. CETIRIZINE HCL [Suspect]

REACTIONS (5)
  - Lactic acidosis [Recovered/Resolved]
  - Mononeuropathy multiplex [Recovering/Resolving]
  - Nausea [Unknown]
  - Vomiting [Unknown]
  - Paraesthesia [Recovering/Resolving]
